FAERS Safety Report 24790105 (Version 3)
Quarter: 2025Q1

REPORT INFORMATION
  Report Type: Report from Study
  Country: FR (occurrence: FR)
  Receive Date: 20241230
  Receipt Date: 20250331
  Transmission Date: 20250409
  Serious: Yes (Hospitalization, Other)
  Sender: MYLAN
  Company Number: FR-UCBSA-2024045292

PATIENT
  Age: 24 Year
  Sex: Female
  Weight: 63 kg

DRUGS (3)
  1. XANAX [Suspect]
     Active Substance: ALPRAZOLAM
     Indication: Product used for unknown indication
  2. ALPRAZOLAM [Suspect]
     Active Substance: ALPRAZOLAM
     Indication: Product used for unknown indication
  3. BIMEKIZUMAB [Suspect]
     Active Substance: BIMEKIZUMAB
     Indication: Psoriasis
     Dates: start: 20240312, end: 20240809

REACTIONS (19)
  - Suicidal ideation [Recovered/Resolved]
  - Suicide attempt [Unknown]
  - Toxicity to various agents [Recovered/Resolved]
  - Abortion spontaneous [Recovered/Resolved]
  - Intermenstrual bleeding [Unknown]
  - Alcohol abuse [Unknown]
  - Tachyphrenia [Unknown]
  - Apraxia [Unknown]
  - Acute stress disorder [Unknown]
  - Nightmare [Unknown]
  - Twin pregnancy [Unknown]
  - Anxiety [Unknown]
  - Depression [Recovering/Resolving]
  - Aggression [Unknown]
  - Decreased appetite [Unknown]
  - Disorientation [Unknown]
  - Initial insomnia [Unknown]
  - Maternal exposure before pregnancy [Unknown]
  - Maternal exposure during pregnancy [Unknown]

NARRATIVE: CASE EVENT DATE: 20240501
